FAERS Safety Report 14374556 (Version 2)
Quarter: 2018Q1

REPORT INFORMATION
  Report Type: Report from Study
  Country: IE (occurrence: IE)
  Receive Date: 20180111
  Receipt Date: 20180129
  Transmission Date: 20180509
  Serious: Yes (Hospitalization, Other)
  Sender: FDA-Public Use
  Company Number: IE-AMGEN-IRLSL2018003203

PATIENT
  Age: 67 Year
  Sex: Female

DRUGS (4)
  1. LANSOPRAZOLE. [Concomitant]
     Active Substance: LANSOPRAZOLE
     Dosage: 30 MG, QD
     Route: 050
  2. VALOID [Concomitant]
     Active Substance: CYCLIZINE HYDROCHLORIDE
     Dosage: 50 MG, TID
     Route: 050
  3. ORAMORPH [Concomitant]
     Active Substance: MORPHINE SULFATE
     Dosage: 1.25 MG, TID
     Route: 050
  4. NEULASTA [Suspect]
     Active Substance: PEGFILGRASTIM
     Indication: PRODUCT USED FOR UNKNOWN INDICATION
     Dosage: 6 MG, AFTER CHEMO 3 WEEKLY CYCLE
     Route: 058

REACTIONS (2)
  - Malaise [Not Recovered/Not Resolved]
  - Biliary drainage [Unknown]

NARRATIVE: CASE EVENT DATE: 20180105
